FAERS Safety Report 19467635 (Version 1)
Quarter: 2021Q2

REPORT INFORMATION
  Report Type: Spontaneous
  Country: US (occurrence: US)
  Receive Date: 20210628
  Receipt Date: 20210628
  Transmission Date: 20210717
  Serious: Yes (Other)
  Sender: FDA-Public Use
  Company Number: None

PATIENT
  Age: 64 Year
  Sex: Female
  Weight: 62.9 kg

DRUGS (3)
  1. SOVALDI [Suspect]
     Active Substance: SOFOSBUVIR
     Dates: start: 20210528
  2. MAVYRET [Suspect]
     Active Substance: GLECAPREVIR\PIBRENTASVIR
     Dates: start: 20210528
  3. RIBAVIRIN. [Suspect]
     Active Substance: RIBAVIRIN
     Indication: HEPATITIS C
     Dosage: ?          OTHER FREQUENCY:Q AM + 200MG Q PM;?
     Route: 048
     Dates: start: 20210528, end: 20210625

REACTIONS (4)
  - Confusional state [None]
  - Condition aggravated [None]
  - Depression [None]
  - Delusion [None]

NARRATIVE: CASE EVENT DATE: 20210625
